FAERS Safety Report 4506960-2 (Version None)
Quarter: 2004Q4

REPORT INFORMATION
  Report Type: 
  Country: None (occurrence: None)
  Receive Date: 20041025
  Receipt Date: 20040726
  Transmission Date: 20050328
  Serious: Yes (Hospitalization)
  Sender: FDA-Public Use
  Company Number: US-JNJFOC-20040707191

PATIENT
  Age: 14 Year
  Sex: Male
  Weight: 66.2252 kg

DRUGS (4)
  1. REMICADE [Suspect]
     Indication: CROHN'S DISEASE
     Dosage: HAD 4 INFUSIONS
     Dates: start: 20040524
  2. PREDNISONE [Concomitant]
  3. PURINETHOL (MERCAPOPURINE) [Concomitant]
  4. PREVACID [Concomitant]

REACTIONS (3)
  - GASTROINTESTINAL INFECTION [None]
  - RASH [None]
  - THERAPEUTIC RESPONSE DECREASED [None]
